FAERS Safety Report 18763294 (Version 2)
Quarter: 2021Q3

REPORT INFORMATION
  Report Type: Report from Study
  Country: US (occurrence: US)
  Receive Date: 20210120
  Receipt Date: 20210803
  Transmission Date: 20211014
  Serious: No
  Sender: FDA-Public Use
  Company Number: US-TAKEDA-2021TUS002112

PATIENT
  Sex: Female
  Weight: 72.5 kg

DRUGS (22)
  1. DIPHENHYDRAMINE. [Concomitant]
     Active Substance: DIPHENHYDRAMINE
  2. TIROSINT [Concomitant]
     Active Substance: LEVOTHYROXINE SODIUM
  3. EPINEPHRINE. [Concomitant]
     Active Substance: EPINEPHRINE
  4. ASPIRIN. [Concomitant]
     Active Substance: ASPIRIN
  5. LIOTHYRONINE [Concomitant]
     Active Substance: LIOTHYRONINE
  6. METHYLTESTOSTERONE. [Concomitant]
     Active Substance: METHYLTESTOSTERONE
  7. CUVITRU [Suspect]
     Active Substance: HUMAN IMMUNOGLOBULIN G
     Indication: IMMUNODEFICIENCY COMMON VARIABLE
     Dosage: 10 GRAM
     Route: 065
  8. LIDOCAINE. [Concomitant]
     Active Substance: LIDOCAINE
  9. MAGNESIUM [Concomitant]
     Active Substance: MAGNESIUM
  10. DICLOFENAC [Concomitant]
     Active Substance: DICLOFENAC
  11. SUNOSI [Concomitant]
     Active Substance: SOLRIAMFETOL
  12. CUVITRU [Suspect]
     Active Substance: HUMAN IMMUNOGLOBULIN G
     Dosage: 12 GRAM, 1/WEEK
     Route: 058
     Dates: start: 20210211
  13. LINZESS [Concomitant]
     Active Substance: LINACLOTIDE
  14. MELATONIN [Concomitant]
     Active Substance: MELATONIN
  15. PRILOCAINE [Concomitant]
     Active Substance: PRILOCAINE
  16. HYDROXYCHLOROQUINE [Concomitant]
     Active Substance: HYDROXYCHLOROQUINE
  17. COENZYME Q10 [Concomitant]
     Active Substance: DIETARY SUPPLEMENT\UBIDECARENONE
  18. ALASKA FISH OIL [Concomitant]
  19. VERAPAMIL [Concomitant]
     Active Substance: VERAPAMIL HYDROCHLORIDE
  20. BOTOX [Concomitant]
     Active Substance: ONABOTULINUMTOXINA
  21. PROGESTERONE. [Concomitant]
     Active Substance: PROGESTERONE
  22. ESTROGEN NOS [Concomitant]
     Active Substance: ESTROGENS

REACTIONS (4)
  - Viral infection [Unknown]
  - Weight increased [Unknown]
  - Stent placement [Unknown]
  - Headache [Unknown]
